FAERS Safety Report 10646444 (Version 1)
Quarter: 2014Q4

REPORT INFORMATION
  Report Type: Spontaneous
  Country: GR (occurrence: GR)
  Receive Date: 20141211
  Receipt Date: 20141211
  Transmission Date: 20150529
  Serious: Yes (Other)
  Sender: FDA-Public Use
  Company Number: GR-JNJFOC-20141203342

PATIENT
  Age: 78 Year
  Sex: Female
  Weight: 60 kg

DRUGS (3)
  1. REGAINE [Suspect]
     Active Substance: MINOXIDIL
     Route: 061
  2. BETNOVATE [Suspect]
     Active Substance: BETAMETHASONE
     Indication: ALOPECIA AREATA
     Route: 061
     Dates: start: 20141029
  3. REGAINE [Suspect]
     Active Substance: MINOXIDIL
     Indication: ALOPECIA AREATA
     Route: 061
     Dates: start: 20141029

REACTIONS (2)
  - Swelling face [Not Recovered/Not Resolved]
  - Vision blurred [Not Recovered/Not Resolved]
